FAERS Safety Report 5732015-5 (Version None)
Quarter: 2008Q2

REPORT INFORMATION
  Report Type: 
  Country: None (occurrence: None)
  Receive Date: 20080508
  Receipt Date: 20080428
  Transmission Date: 20081010
  Serious: Yes (Death)
  Sender: FDA-Public Use
  Company Number: US-BAXTER-2008BH004436

PATIENT
  Age: 78 Year
  Sex: Male
  Weight: 89 kg

DRUGS (4)
  1. ATIVAN [Suspect]
     Indication: MYOCLONIC EPILEPSY
     Dosage: DOSE UNIT:UNKNOWN
     Route: 042
     Dates: start: 20080205, end: 20080205
  2. IRINOTECAN HCL [Suspect]
     Indication: GLIOBLASTOMA
     Route: 042
     Dates: start: 20071030, end: 20080205
  3. BEVACIZUMAB [Suspect]
     Indication: GLIOBLASTOMA
     Route: 042
     Dates: start: 20071030, end: 20080205
  4. DEPAKOTE [Suspect]
     Indication: CONVULSION
     Dosage: DOSE UNIT:UNKNOWN
     Route: 042
     Dates: start: 20080205, end: 20080205

REACTIONS (5)
  - ASPIRATION [None]
  - CONVULSION [None]
  - DYSPNOEA [None]
  - PNEUMONIA ASPIRATION [None]
  - RESPIRATORY FAILURE [None]
